FAERS Safety Report 4981518-X (Version None)
Quarter: 2006Q2

REPORT INFORMATION
  Report Type: 
  Country: None (occurrence: None)
  Receive Date: 20060424
  Receipt Date: 20060104
  Transmission Date: 20061013
  Serious: Yes (Hospitalization, Other)
  Sender: FDA-Public Use
  Company Number: US-MERCK-0601USA00335

PATIENT
  Age: 63 Year
  Sex: Male
  Weight: 105 kg

DRUGS (12)
  1. VIOXX [Suspect]
     Indication: OSTEOARTHRITIS
     Route: 048
     Dates: start: 20040101, end: 20041028
  2. VIOXX [Suspect]
     Route: 048
     Dates: start: 20040101, end: 20041028
  3. ZETIA [Concomitant]
     Indication: LIPIDS
     Route: 065
  4. LANTUS [Concomitant]
     Indication: DIABETES MELLITUS
     Route: 065
  5. LIPITOR [Concomitant]
     Indication: BLOOD CHOLESTEROL
     Route: 065
  6. LISINOPRIL [Concomitant]
     Route: 065
  7. TOPROL-XL [Concomitant]
     Route: 065
  8. LEXAPRO [Concomitant]
     Indication: DEPRESSION
     Route: 065
  9. AGGRENOX [Concomitant]
     Route: 065
  10. PROTONIX [Concomitant]
     Route: 065
  11. GLUCOTROL XL [Concomitant]
     Indication: DIABETES MELLITUS
     Route: 065
  12. METFORMIN [Concomitant]
     Indication: DIABETES MELLITUS
     Route: 065

REACTIONS (8)
  - ANGINA PECTORIS [None]
  - ARTERIOSCLEROSIS [None]
  - ARTHROPATHY [None]
  - CORONARY ARTERY DISEASE [None]
  - DEPRESSION [None]
  - DYSPEPSIA [None]
  - HYPERTENSION [None]
  - MYOCARDIAL INFARCTION [None]
